FAERS Safety Report 8033106-9 (Version None)
Quarter: 2012Q1

REPORT INFORMATION
  Report Type: 
  Country: None (occurrence: None)
  Receive Date: 20120110
  Receipt Date: 20120110
  Transmission Date: 20120608
  Serious: Yes (Hospitalization, Other)
  Sender: FDA-Public Use
  Company Number: None

PATIENT
  Sex: Male
  Weight: 92.27 kg

DRUGS (1)
  1. TRAZODONE HCL [Suspect]
     Indication: INSOMNIA
     Dosage: 50 MG
     Route: 048
     Dates: start: 20111109, end: 20111110

REACTIONS (3)
  - PRIAPISM [None]
  - GROIN PAIN [None]
  - GASTRIC DISORDER [None]
